FAERS Safety Report 19703496 (Version 2)
Quarter: 2021Q4

REPORT INFORMATION
  Report Type: Report from Study
  Country: US (occurrence: US)
  Receive Date: 20210816
  Receipt Date: 20211013
  Transmission Date: 20220303
  Serious: Yes (Other)
  Sender: FDA-Public Use
  Company Number: US-SANOFI-00719747

PATIENT
  Age: 58 Year
  Sex: Female

DRUGS (4)
  1. DUPILUMAB [Suspect]
     Active Substance: DUPILUMAB
     Indication: Dermatitis atopic
     Dosage: 600 MG, 1X
     Route: 058
     Dates: start: 20210519, end: 20210519
  2. DUPILUMAB [Suspect]
     Active Substance: DUPILUMAB
     Dosage: 300 MG, QOW
     Route: 058
     Dates: start: 20210818
  3. TRULICITY [Concomitant]
     Active Substance: DULAGLUTIDE
  4. INSULIN NOS [Concomitant]
     Active Substance: INSULIN NOS
     Dosage: UNK, QD

REACTIONS (8)
  - Diabetes mellitus [Not Recovered/Not Resolved]
  - Weight increased [Not Recovered/Not Resolved]
  - Blood glucose increased [Unknown]
  - Injection site pain [Recovering/Resolving]
  - COVID-19 [Recovering/Resolving]
  - Cough [Recovering/Resolving]
  - SARS-CoV-2 test positive [Recovering/Resolving]
  - Sinus disorder [Recovering/Resolving]

NARRATIVE: CASE EVENT DATE: 20210101
